FAERS Safety Report 7280507-2 (Version None)
Quarter: 2011Q1

REPORT INFORMATION
  Report Type: 
  Country: None (occurrence: None)
  Receive Date: 20110208
  Receipt Date: 20110125
  Transmission Date: 20110831
  Serious: Yes (Hospitalization, Other)
  Sender: FDA-Public Use
  Company Number: DE-AMGEN-DEUSP2010007915

PATIENT
  Age: 32 Year
  Sex: Male

DRUGS (2)
  1. METHOTREXATE [Concomitant]
     Indication: PRODUCT USED FOR UNKNOWN INDICATION
  2. ENBREL [Suspect]
     Indication: PSORIASIS
     Dosage: UNK

REACTIONS (7)
  - MOTOR NEURONE DISEASE [None]
  - GAIT DISTURBANCE [None]
  - DYSARTHRIA [None]
  - MUSCLE CONTRACTIONS INVOLUNTARY [None]
  - AMYOTROPHIC LATERAL SCLEROSIS [None]
  - MUSCLE SPASMS [None]
  - MUSCULAR WEAKNESS [None]
